FAERS Safety Report 12328880 (Version 1)
Quarter: 2016Q2

REPORT INFORMATION
  Report Type: Spontaneous
  Country: US (occurrence: US)
  Receive Date: 20160503
  Receipt Date: 20160503
  Transmission Date: 20160815
  Serious: No
  Sender: FDA-Public Use
  Company Number: US-BEH-2015049198

PATIENT
  Sex: Female
  Weight: 67 kg

DRUGS (21)
  1. HIZENTRA [Suspect]
     Active Substance: HUMAN IMMUNOGLOBULIN G
     Indication: IMMUNODEFICIENCY COMMON VARIABLE
     Route: 058
  2. DULCOLAX NOS [Concomitant]
     Active Substance: BISACODYL OR DOCUSATE SODIUM
  3. LIDOCAINE. [Concomitant]
     Active Substance: LIDOCAINE
  4. LANTUS [Concomitant]
     Active Substance: INSULIN GLARGINE
  5. VICODIN [Concomitant]
     Active Substance: ACETAMINOPHEN\HYDROCODONE BITARTRATE
  6. ALBUTEROL. [Concomitant]
     Active Substance: ALBUTEROL
  7. METHOCARBAMOL. [Concomitant]
     Active Substance: METHOCARBAMOL
  8. DIPHENHYDRAMINE. [Concomitant]
     Active Substance: DIPHENHYDRAMINE
  9. AFRIN [Concomitant]
     Active Substance: OXYMETAZOLINE
  10. BUDESONIDE. [Concomitant]
     Active Substance: BUDESONIDE
  11. ASPIRIN. [Concomitant]
     Active Substance: ASPIRIN
  12. EPIPEN [Concomitant]
     Active Substance: EPINEPHRINE
  13. LEVAQUIN [Concomitant]
     Active Substance: LEVOFLOXACIN
  14. MIRALAX [Concomitant]
     Active Substance: POLYETHYLENE GLYCOL 3350
  15. FLUTICASONE [Concomitant]
     Active Substance: FLUTICASONE\FLUTICASONE PROPIONATE
  16. PROAIR HFA [Concomitant]
     Active Substance: ALBUTEROL SULFATE
  17. CLOTRIMAZOLE. [Concomitant]
     Active Substance: CLOTRIMAZOLE
  18. GABAPENTIN. [Concomitant]
     Active Substance: GABAPENTIN
  19. CHLORPHENIRAMINE. [Concomitant]
     Active Substance: CHLORPHENIRAMINE
  20. LISINOPRIL. [Concomitant]
     Active Substance: LISINOPRIL
  21. LUMIGAN [Concomitant]
     Active Substance: BIMATOPROST

REACTIONS (1)
  - Dyspnoea [Not Recovered/Not Resolved]
